FAERS Safety Report 11363969 (Version 1)
Quarter: 2015Q3

REPORT INFORMATION
  Report Type: Spontaneous
  Country: US (occurrence: None)
  Receive Date: 20150810
  Receipt Date: 20150810
  Transmission Date: 20151125
  Serious: Yes (Hospitalization, Disabling)
  Sender: FDA-Public Use
  Company Number: None

PATIENT
  Age: 76 Year
  Sex: Male
  Weight: 77.11 kg

DRUGS (10)
  1. CIPROFLOXACIN IV DOSAGE [Suspect]
     Active Substance: CIPROFLOXACIN
     Indication: DIVERTICULITIS
     Route: 048
     Dates: start: 20150701, end: 20150706
  2. WALKER [Concomitant]
  3. MEVACOR [Concomitant]
     Active Substance: LOVASTATIN
  4. QVAR [Concomitant]
     Active Substance: BECLOMETHASONE DIPROPIONATE
  5. QUAD CANE [Concomitant]
  6. OXYGEN/NASAL CANNULA [Concomitant]
  7. DILITIAZEM [Concomitant]
     Active Substance: DILTIAZEM
  8. LISINOPRIL/HCT [Concomitant]
  9. PROAIR HFA [Concomitant]
     Active Substance: ALBUTEROL SULFATE
  10. CQ10 [Concomitant]
     Active Substance: UBIDECARENONE

REACTIONS (7)
  - Paraesthesia [None]
  - Asthenia [None]
  - Dyspnoea exertional [None]
  - Gait disturbance [None]
  - Limb discomfort [None]
  - Musculoskeletal disorder [None]
  - Arthralgia [None]

NARRATIVE: CASE EVENT DATE: 20150807
